FAERS Safety Report 16697720 (Version 1)
Quarter: 2019Q3

REPORT INFORMATION
  Report Type: Spontaneous
  Country: US (occurrence: US)
  Receive Date: 20190813
  Receipt Date: 20190813
  Transmission Date: 20191004
  Serious: No
  Sender: FDA-Public Use
  Company Number: US-JNJFOC-20190813485

PATIENT
  Age: 30 Year
  Sex: Male
  Weight: 95.34 kg

DRUGS (1)
  1. TREMFYA [Suspect]
     Active Substance: GUSELKUMAB
     Indication: PSORIASIS
     Dosage: PATIENT AS AT WEEK 0 (1ST DOSE) AT THE TIME OF REPORT.
     Route: 058

REACTIONS (4)
  - Device issue [Unknown]
  - Underdose [Unknown]
  - Injection site haemorrhage [Recovered/Resolved]
  - Accidental exposure to product [Recovered/Resolved]

NARRATIVE: CASE EVENT DATE: 20190725
